FAERS Safety Report 9342831 (Version 3)
Quarter: 2013Q3

REPORT INFORMATION
  Report Type: Spontaneous
  Country: CA (occurrence: CA)
  Receive Date: 20130611
  Receipt Date: 20130726
  Transmission Date: 20140515
  Serious: Yes (Hospitalization)
  Sender: FDA-Public Use
  Company Number: CA-GLAXOSMITHKLINE-A1025270A

PATIENT
  Age: 60 Year
  Sex: Female
  Weight: 87 kg

DRUGS (5)
  1. VOTRIENT [Suspect]
     Indication: RENAL CANCER METASTATIC
     Dosage: 800MG PER DAY
     Route: 048
     Dates: start: 20120815
  2. NEXIUM [Concomitant]
  3. RAMIPRIL [Concomitant]
  4. RANITIDINE [Concomitant]
  5. PAMIDRONATE [Concomitant]
     Indication: METASTASES TO BONE
     Dosage: 90MG SEE DOSAGE TEXT
     Route: 042
     Dates: start: 20120725

REACTIONS (4)
  - Renal surgery [Not Recovered/Not Resolved]
  - Ageusia [Unknown]
  - Adverse drug reaction [Unknown]
  - Hypertension [Recovered/Resolved]
